FAERS Safety Report 25358631 (Version 2)
Quarter: 2025Q2

REPORT INFORMATION
  Report Type: Spontaneous
  Country: CN (occurrence: CN)
  Receive Date: 20250526
  Receipt Date: 20250530
  Transmission Date: 20250716
  Serious: Yes (Hospitalization, Other)
  Sender: MERCK SHARP & DOHME LLC
  Company Number: CN-009507513-2288431

PATIENT
  Sex: Male

DRUGS (2)
  1. SITAGLIPTIN PHOSPHATE [Suspect]
     Active Substance: SITAGLIPTIN PHOSPHATE
     Indication: Diabetes mellitus
     Route: 048
  2. METFORMIN [Concomitant]
     Active Substance: METFORMIN HYDROCHLORIDE
     Indication: Diabetes mellitus

REACTIONS (18)
  - Drug dependence [Unknown]
  - Diabetic nephropathy [Unknown]
  - Diabetic complication [Unknown]
  - Rash [Unknown]
  - Muscular weakness [Unknown]
  - Hospitalisation [Recovered/Resolved]
  - Vomiting [Unknown]
  - Abdominal distension [Unknown]
  - Nausea [Unknown]
  - Abdominal pain [Unknown]
  - Drug effect less than expected [Unknown]
  - Drug resistance [Unknown]
  - Headache [Unknown]
  - Hospitalisation [Recovered/Resolved]
  - Pruritus [Unknown]
  - Dizziness [Unknown]
  - Diabetic complication cardiovascular [Unknown]
  - Hospitalisation [Recovered/Resolved]

NARRATIVE: CASE EVENT DATE: 20240101
